FAERS Safety Report 15900199 (Version 4)
Quarter: 2019Q3

REPORT INFORMATION
  Report Type: Spontaneous
  Country: GT (occurrence: GT)
  Receive Date: 20190201
  Receipt Date: 20190730
  Transmission Date: 20191004
  Serious: Yes (Death, Life-Threatening, Hospitalization)
  Sender: FDA-Public Use
  Company Number: GT-PFIZER INC-2019044948

PATIENT
  Age: 31 Year
  Sex: Female

DRUGS (3)
  1. BUPIVACAINE HCL [Suspect]
     Active Substance: BUPIVACAINE HYDROCHLORIDE
     Indication: SPINAL ANAESTHESIA
     Dosage: 10 MG, SINGLE
     Route: 065
  2. EPINEPHRINE. [Suspect]
     Active Substance: EPINEPHRINE
     Indication: ANAPHYLACTIC SHOCK
     Dosage: UNK (INFUSION)
  3. FENTANYL CITRATE. [Suspect]
     Active Substance: FENTANYL CITRATE
     Indication: SPINAL ANAESTHESIA
     Dosage: 25 UG, SINGLE
     Route: 065

REACTIONS (8)
  - Cardiac arrest [Fatal]
  - Hypersensitivity [Unknown]
  - Condition aggravated [Unknown]
  - Respiratory arrest [Fatal]
  - Myocardial ischaemia [Unknown]
  - Kounis syndrome [Unknown]
  - Anaphylactic shock [Unknown]
  - Arrhythmia [Unknown]
